FAERS Safety Report 11251265 (Version 1)
Quarter: 2015Q3

REPORT INFORMATION
  Report Type: Spontaneous
  Country: MX (occurrence: MX)
  Receive Date: 20150708
  Receipt Date: 20150708
  Transmission Date: 20151125
  Serious: Yes (Death)
  Sender: FDA-Public Use
  Company Number: MX-PFIZER INC-2015227023

PATIENT
  Age: 80 Year
  Sex: Female

DRUGS (1)
  1. REVATHIO [Suspect]
     Active Substance: SILDENAFIL CITRATE
     Dosage: 20 MG, 2X/DAY
     Route: 048
     Dates: start: 2010

REACTIONS (2)
  - Diabetes mellitus [Fatal]
  - Myocardial ischaemia [Fatal]
